FAERS Safety Report 24618227 (Version 2)
Quarter: 2024Q4

REPORT INFORMATION
  Report Type: Report from Study
  Country: US (occurrence: US)
  Receive Date: 20241114
  Receipt Date: 20241219
  Transmission Date: 20250114
  Serious: Yes (Other)
  Sender: BAYER HEALTHCARE PHARMACEUTICALS INC.
  Company Number: US-BAYER-2024A126913

PATIENT
  Sex: Female
  Weight: 47.166 kg

DRUGS (21)
  1. ADEMPAS [Suspect]
     Active Substance: RIOCIGUAT
     Indication: Pulmonary arterial hypertension
     Dosage: 0.5 MG, TID
     Route: 048
     Dates: start: 20240322
  2. ADEMPAS [Suspect]
     Active Substance: RIOCIGUAT
     Indication: Pulmonary arterial hypertension
     Dosage: UNK, BID
  3. ASPIRIN [Concomitant]
     Active Substance: ASPIRIN
  4. FUROSEMIDE [Concomitant]
     Active Substance: FUROSEMIDE
  5. METHOCARBAMOL [Concomitant]
     Active Substance: METHOCARBAMOL
  6. ACETAMINOPHEN\HYDROCODONE [Concomitant]
     Active Substance: ACETAMINOPHEN\HYDROCODONE
  7. ELIQUIS [Concomitant]
     Active Substance: APIXABAN
  8. FOLIC ACID [Concomitant]
     Active Substance: FOLIC ACID
  9. OPSUMIT [Concomitant]
     Active Substance: MACITENTAN
  10. PRAVASTATIN SODIUM [Concomitant]
     Active Substance: PRAVASTATIN SODIUM
  11. SULFASALAZINE [Concomitant]
     Active Substance: SULFASALAZINE
  12. TRELEGY ELLIPTA [Concomitant]
     Active Substance: FLUTICASONE FUROATE\UMECLIDINIUM BROMIDE\VILANTEROL TRIFENATATE
  13. LEVALBUTEROL TARTRATE [Concomitant]
     Active Substance: LEVALBUTEROL TARTRATE
  14. AMIODARONE HYDROCHLORIDE [Concomitant]
     Active Substance: AMIODARONE HYDROCHLORIDE
  15. COENZYME Q10 [Concomitant]
     Active Substance: DIETARY SUPPLEMENT\UBIDECARENONE
  16. PREDNISONE [Concomitant]
     Active Substance: PREDNISONE
  17. FLUTICASONE PROPIONATE [Concomitant]
     Active Substance: FLUTICASONE PROPIONATE
  18. IPRATROPIUM BROMIDE [Concomitant]
     Active Substance: IPRATROPIUM BROMIDE
  19. OXYGEN [Concomitant]
     Active Substance: OXYGEN
  20. BENZONATATE [Concomitant]
     Active Substance: BENZONATATE
  21. Vision [Concomitant]

REACTIONS (6)
  - Rheumatoid arthritis [None]
  - Musculoskeletal stiffness [None]
  - Neck pain [None]
  - Headache [Not Recovered/Not Resolved]
  - Product prescribing error [None]
  - Dyspnoea [None]

NARRATIVE: CASE EVENT DATE: 20240101
